FAERS Safety Report 10795169 (Version 1)
Quarter: 2015Q1

REPORT INFORMATION
  Report Type: Spontaneous
  Country: US (occurrence: US)
  Receive Date: 20150214
  Receipt Date: 20150214
  Transmission Date: 20150721
  Serious: No
  Sender: FDA-Public Use
  Company Number: US-GLAXOSMITHKLINE-A1055533A

PATIENT

DRUGS (3)
  1. WELLBUTRIN [Suspect]
     Active Substance: BUPROPION HYDROCHLORIDE
     Indication: PRODUCT USED FOR UNKNOWN INDICATION
  2. NICODERM CQ [Suspect]
     Active Substance: NICOTINE
     Indication: EX-TOBACCO USER
     Route: 062
     Dates: start: 20131103, end: 20131117
  3. NICORETTE FRUIT CHILL [Suspect]
     Active Substance: NICOTINE
     Indication: EX-TOBACCO USER
     Route: 002
     Dates: start: 20131103, end: 20131117

REACTIONS (4)
  - Feeling jittery [Recovered/Resolved]
  - Overdose [Unknown]
  - Expired product administered [Unknown]
  - Nervousness [Unknown]
